FAERS Safety Report 17747347 (Version 1)
Quarter: 2020Q2

REPORT INFORMATION
  Report Type: Spontaneous
  Country: US (occurrence: US)
  Receive Date: 20200505
  Receipt Date: 20200505
  Transmission Date: 20200714
  Serious: Yes (Hospitalization, Other)
  Sender: FDA-Public Use
  Company Number: NVSC2020US120127

PATIENT
  Age: 52 Year
  Sex: Male

DRUGS (2)
  1. MYCOPHENOLATE MOFETIL. [Suspect]
     Active Substance: MYCOPHENOLATE MOFETIL
     Indication: AUTOIMMUNE HAEMOLYTIC ANAEMIA
     Dosage: UNK
     Route: 065
  2. PREDNISONE. [Suspect]
     Active Substance: PREDNISONE
     Indication: AUTOIMMUNE HAEMOLYTIC ANAEMIA
     Dosage: 40 MG
     Route: 065

REACTIONS (7)
  - Asthenia [Unknown]
  - Product use in unapproved indication [Unknown]
  - Hemiparesis [Unknown]
  - Dysarthria [Unknown]
  - Varicella zoster virus infection [Recovered/Resolved]
  - Cerebrovascular accident [Unknown]
  - Angiopathy [Unknown]
